FAERS Safety Report 11244109 (Version 1)
Quarter: 2015Q3

REPORT INFORMATION
  Report Type: Spontaneous
  Country: US (occurrence: None)
  Receive Date: 20150706
  Receipt Date: 20150706
  Transmission Date: 20151125
  Serious: No
  Sender: FDA-Public Use
  Company Number: None

PATIENT

DRUGS (1)
  1. METHOTREXATE [Suspect]
     Active Substance: METHOTREXATE

REACTIONS (12)
  - Peripheral swelling [None]
  - Drug dispensing error [None]
  - Inappropriate schedule of drug administration [None]
  - Exercise lack of [None]
  - Thrombocytopenia [None]
  - Depressed level of consciousness [None]
  - Fatigue [None]
  - Contusion [None]
  - Dyspnoea [None]
  - Pain in extremity [None]
  - Accidental overdose [None]
  - Dyspnoea exertional [None]

NARRATIVE: CASE EVENT DATE: 2015
